FAERS Safety Report 4656942-5 (Version None)
Quarter: 2005Q2

REPORT INFORMATION
  Report Type: 
  Country: None (occurrence: None)
  Receive Date: 20050506
  Receipt Date: 20050502
  Transmission Date: 20051028
  Serious: Yes (Hospitalization, Other)
  Sender: FDA-Public Use
  Company Number: FRWYE635202MAY05

PATIENT
  Age: 36 Year
  Sex: Male

DRUGS (8)
  1. EFFEXOR XR [Suspect]
     Dosage: 37.5 MG 2X PER 1 DAY
     Route: 048
     Dates: start: 20050202, end: 20050210
  2. ACETAMINOPHEN [Concomitant]
  3. CLONAZEPAM [Concomitant]
  4. SCOPOLAMINE HYDROCHLORIDE (SCOPOLAMINE HYDROCHLORIDE) [Concomitant]
  5. NEXIUM [Concomitant]
  6. XANAX [Concomitant]
  7. MORPHINE [Concomitant]
  8. STILNOX (ZOLPIDEM) [Concomitant]

REACTIONS (4)
  - BACTERAEMIA [None]
  - CITROBACTER INFECTION [None]
  - PANCYTOPENIA [None]
  - STAPHYLOCOCCAL BACTERAEMIA [None]
